FAERS Safety Report 9301514 (Version 1)
Quarter: 2013Q2

REPORT INFORMATION
  Report Type: Report from Study
  Country: VE (occurrence: VE)
  Receive Date: 20130521
  Receipt Date: 20130521
  Transmission Date: 20140414
  Serious: Yes (Hospitalization)
  Sender: FDA-Public Use
  Company Number: PHHY2011VE110983

PATIENT
  Age: 75 Year
  Sex: Female

DRUGS (4)
  1. ACLASTA [Suspect]
     Indication: OSTEOPOROSIS
     Dosage: 5MG/ IV ROUTE ONCE A YEAR
     Route: 042
     Dates: start: 200902
  2. ACLASTA [Suspect]
     Dosage: 5MG/ IV ROUTE ONCE A YEAR
     Route: 042
     Dates: start: 201002
  3. ACLASTA [Suspect]
     Dosage: 5MG/ IV ROUTE ONCE A YEAR
     Route: 042
     Dates: start: 201102
  4. CALCIBON (CALCIUM CITRATE) [Concomitant]
     Indication: OSTEOPOROSIS
     Dosage: UNK UKN, UNK

REACTIONS (2)
  - Fall [Recovered/Resolved]
  - Lumbar vertebral fracture [Recovered/Resolved]
